FAERS Safety Report 4432207-1 (Version None)
Quarter: 2004Q3

REPORT INFORMATION
  Report Type: 
  Country: None (occurrence: None)
  Receive Date: 20040825
  Receipt Date: 20040603
  Transmission Date: 20050211
  Serious: Yes (Hospitalization)
  Sender: FDA-Public Use
  Company Number: DE-ROCHE-369798

PATIENT
  Age: 75 Year
  Sex: Female
  Weight: 73 kg

DRUGS (10)
  1. IBANDRONIC ACID [Suspect]
     Indication: METASTASES TO BONE
     Route: 048
     Dates: start: 20040512, end: 20040513
  2. ZOLEDRONIC ACID [Suspect]
     Indication: METASTASES TO BONE
     Route: 042
     Dates: start: 20040217, end: 20040413
  3. NEXIUM [Concomitant]
     Dates: start: 20030615
  4. ENAHEXAL [Concomitant]
     Dates: start: 20030615
  5. AMITRIPTYLINE HCL [Concomitant]
     Dates: start: 20031204, end: 20040519
  6. FENTANYL [Concomitant]
     Dates: start: 20030615
  7. VIOXX [Concomitant]
     Dates: start: 20031205, end: 20040519
  8. DEXAMETHASONE [Concomitant]
     Dates: start: 20031211, end: 20040514
  9. NEURONTIN [Concomitant]
     Dosage: DRUG STOPPED ON 19 MAY 2004 AND REINTRODUCED ON 23 MAY 2004 AT 300MG PER DAY.
     Dates: start: 20031208
  10. CALCIMAGON [Concomitant]
     Dosage: DAILY DOSE : 500 MG, 400 IE.
     Dates: start: 20040217

REACTIONS (1)
  - RENAL FAILURE [None]
